FAERS Safety Report 11099043 (Version 3)
Quarter: 2015Q2

REPORT INFORMATION
  Report Type: Report from Study
  Country: JP (occurrence: JP)
  Receive Date: 20150508
  Receipt Date: 20150619
  Transmission Date: 20150821
  Serious: Yes (Hospitalization)
  Sender: FDA-Public Use
  Company Number: JP-ROCHE-1575180

PATIENT
  Age: 83 Year
  Sex: Male

DRUGS (7)
  1. RANIBIZUMAB [Suspect]
     Active Substance: RANIBIZUMAB
     Dosage: IN THE LEFT EYE
     Route: 031
     Dates: start: 20141022, end: 20141022
  2. CRAVIT [Concomitant]
     Active Substance: LEVOFLOXACIN
     Route: 065
     Dates: start: 20141022, end: 20141022
  3. CRAVIT [Concomitant]
     Active Substance: LEVOFLOXACIN
     Route: 065
     Dates: start: 20150218, end: 20150218
  4. PRORANON [Concomitant]
  5. RANIBIZUMAB [Suspect]
     Active Substance: RANIBIZUMAB
     Indication: RETINAL VEIN OCCLUSION
     Dosage: IN THE LEFT EYE
     Route: 031
     Dates: start: 20140402, end: 20140402
  6. RANIBIZUMAB [Suspect]
     Active Substance: RANIBIZUMAB
     Dosage: IN THE LEFT EYE
     Route: 031
     Dates: start: 20140709, end: 20140709
  7. RANIBIZUMAB [Suspect]
     Active Substance: RANIBIZUMAB
     Dosage: IN THE LEFT EYE
     Route: 031
     Dates: start: 20150218, end: 20150218

REACTIONS (1)
  - Cerebral infarction [Unknown]

NARRATIVE: CASE EVENT DATE: 201504
